FAERS Safety Report 6900180-X (Version None)
Quarter: 2010Q3

REPORT INFORMATION
  Report Type: 
  Country: None (occurrence: None)
  Receive Date: 20100803
  Receipt Date: 20100721
  Transmission Date: 20110219
  Serious: Yes (Hospitalization)
  Sender: FDA-Public Use
  Company Number: US-ELI_LILLY_AND_COMPANY-US201007005310

PATIENT
  Age: 93 Year
  Sex: Female

DRUGS (6)
  1. CYMBALTA [Suspect]
     Dosage: 60 MG, DAILY (1/D)
     Dates: start: 20100623
  2. CYMBALTA [Suspect]
     Dosage: 30 MG, UNK
  3. PROZAC [Suspect]
  4. SYNTHROID [Concomitant]
     Dosage: 75 UG, UNKNOWN
     Route: 065
  5. RAZADYNE [Concomitant]
     Dosage: 8 MG, DAILY (1/D)
     Route: 065
  6. VYTORIN [Concomitant]

REACTIONS (3)
  - ASTHENIA [None]
  - DIZZINESS [None]
  - FALL [None]
